FAERS Safety Report 6843555-X (Version None)
Quarter: 2010Q3

REPORT INFORMATION
  Report Type: 
  Country: None (occurrence: None)
  Receive Date: 20100715
  Receipt Date: 20100706
  Transmission Date: 20110219
  Serious: Yes (Hospitalization)
  Sender: FDA-Public Use
  Company Number: US-ASTRAZENECA-2010SE31325

PATIENT
  Age: 41 Year
  Sex: Female

DRUGS (2)
  1. SEROQUEL XR [Suspect]
     Route: 048
  2. MULTIPLE OTHER DRUGS [Concomitant]

REACTIONS (1)
  - GASTRIC BYPASS [None]
